FAERS Safety Report 21834464 (Version 1)
Quarter: 2023Q1

REPORT INFORMATION
  Report Type: Spontaneous
  Country: US (occurrence: None)
  Receive Date: 20230108
  Receipt Date: 20230108
  Transmission Date: 20230418
  Serious: No
  Sender: FDA-Public Use
  Company Number: US-ROCHE-3205724

PATIENT
  Sex: Male

DRUGS (1)
  1. HEMLIBRA [Suspect]
     Active Substance: EMICIZUMAB-KXWH
     Indication: Factor VIII deficiency
     Dosage: LAST DOSE RECEIVED ON 12/OCT/2022
     Route: 058
     Dates: start: 202209

REACTIONS (2)
  - Medication error [Unknown]
  - No adverse event [Unknown]
